FAERS Safety Report 10302771 (Version 2)
Quarter: 2014Q3

REPORT INFORMATION
  Report Type: Spontaneous
  Country: US (occurrence: US)
  Receive Date: 20140714
  Receipt Date: 20140916
  Transmission Date: 20150326
  Serious: Yes (Death, Hospitalization)
  Sender: FDA-Public Use
  Company Number: US-GLAXOSMITHKLINE-A1080752A

PATIENT
  Age: 68 Year
  Sex: Female

DRUGS (3)
  1. VOTRIENT [Suspect]
     Active Substance: PAZOPANIB HYDROCHLORIDE
     Indication: RENAL CELL CARCINOMA
     Route: 065
     Dates: start: 201406, end: 20140708
  2. ALPRAZOLAM. [Concomitant]
     Active Substance: ALPRAZOLAM
  3. UNKNOWN BLOOD PRESSURE MEDICATION [Concomitant]
     Active Substance: UNSPECIFIED INGREDIENT

REACTIONS (4)
  - Respiratory arrest [Fatal]
  - Thrombosis [Fatal]
  - Pneumonia [Fatal]
  - Cardiac disorder [Fatal]

NARRATIVE: CASE EVENT DATE: 2014
